FAERS Safety Report 5972232-2 (Version None)
Quarter: 2008Q4

REPORT INFORMATION
  Report Type: 
  Country: None (occurrence: None)
  Receive Date: 20081201
  Receipt Date: 20071119
  Transmission Date: 20090506
  Serious: No
  Sender: FDA-Public Use
  Company Number: US-TEVA-165048USA

PATIENT
  Sex: Female

DRUGS (3)
  1. SALBUTAMOL SULFATE INHALATION, 0.09 MG [Suspect]
     Dosage: 2 PUFFS EVERY FOUR HOURS AS NEEDED
     Route: 055
     Dates: start: 20071101, end: 20071101
  2. SERETIDE [Concomitant]
  3. FLUNISOLIDE [Concomitant]

REACTIONS (1)
  - THROAT IRRITATION [None]
